FAERS Safety Report 7342715-1 (Version None)
Quarter: 2011Q1

REPORT INFORMATION
  Report Type: 
  Country: None (occurrence: None)
  Receive Date: 20110301
  Receipt Date: 20110214
  Transmission Date: 20110831
  Serious: Yes (Other)
  Sender: FDA-Public Use
  Company Number: 2011SP007329

PATIENT
  Age: 61 Year
  Sex: Male

DRUGS (3)
  1. CEDAX [Suspect]
     Indication: PRODUCT USED FOR UNKNOWN INDICATION
     Dosage: 400 MG PO
     Route: 048
     Dates: start: 20110127, end: 20110127
  2. NUROFEN COLD (NUROFEN COLD AND FLU) [Concomitant]
  3. ETOL FORT (ETODOLAC) [Concomitant]

REACTIONS (1)
  - ANGIOEDEMA [None]
